FAERS Safety Report 15150024 (Version 2)
Quarter: 2019Q3

REPORT INFORMATION
  Report Type: Spontaneous
  Country: US (occurrence: US)
  Receive Date: 20180716
  Receipt Date: 20190724
  Transmission Date: 20191004
  Serious: Yes (Other)
  Sender: FDA-Public Use
  Company Number: US-PFIZER INC-2018282041

PATIENT
  Sex: Female

DRUGS (1)
  1. IBRANCE [Suspect]
     Active Substance: PALBOCICLIB
     Indication: BREAST CANCER STAGE IV
     Dosage: 125 MG, 1X/DAY (125 MG CAPSULE BY MOUTH 1 TIME DAILY FOR 3 WEEKS)
     Route: 048
     Dates: start: 201705

REACTIONS (3)
  - Diabetes mellitus [Unknown]
  - Dizziness [Unknown]
  - Memory impairment [Unknown]
